FAERS Safety Report 20119240 (Version 1)
Quarter: 2021Q4

REPORT INFORMATION
  Report Type: Spontaneous
  Country: US (occurrence: None)
  Receive Date: 20211125
  Receipt Date: 20211125
  Transmission Date: 20220303
  Serious: Yes (Hospitalization)
  Sender: FDA-Public Use
  Company Number: None

PATIENT
  Sex: Female

DRUGS (1)
  1. FULPHILA [Suspect]
     Active Substance: PEGFILGRASTIM-JMDB
     Indication: B-cell lymphoma
     Dosage: OTHER FREQUENCY : AFTER CHEMOTHERAPY;?
     Route: 058
     Dates: start: 20210914

REACTIONS (1)
  - Hospitalisation [None]
